FAERS Safety Report 9203672 (Version 2)
Quarter: 2013Q2

REPORT INFORMATION
  Report Type: Spontaneous
  Country: MX (occurrence: MX)
  Receive Date: 20130402
  Receipt Date: 20130405
  Transmission Date: 20140414
  Serious: Yes (Other)
  Sender: FDA-Public Use
  Company Number: PHHY2013MX031471

PATIENT
  Age: 94 Year
  Sex: Male

DRUGS (5)
  1. CO-DIOVAN [Suspect]
     Indication: HYPERTENSION
     Dosage: 1 DF, 1 FILM COATED TABLET (160/12.5MG) DAILY
     Route: 048
     Dates: start: 200706, end: 20130301
  2. FLANAX [Concomitant]
     Dosage: UNK
     Dates: start: 201302
  3. ZINNAT [Concomitant]
     Dosage: UNK
     Dates: start: 201302
  4. ESCLEROVITAN ANTIO [Concomitant]
     Dosage: UNK
     Dates: start: 201302
  5. DOLAC [Concomitant]
     Dosage: UNK
     Dates: start: 201302

REACTIONS (3)
  - Nasal neoplasm [Not Recovered/Not Resolved]
  - Concomitant disease progression [Not Recovered/Not Resolved]
  - Constipation [Recovered/Resolved]
